APPROVED DRUG PRODUCT: FAMOTIDINE
Active Ingredient: FAMOTIDINE
Strength: 40MG
Dosage Form/Route: TABLET;ORAL
Application: A077352 | Product #001
Applicant: PERRIGO R AND D CO
Approved: Jul 27, 2005 | RLD: No | RS: No | Type: DISCN